FAERS Safety Report 8773341 (Version 1)
Quarter: 2012Q4

REPORT INFORMATION
  Report Type: 
  Country: US (occurrence: US)
  Receive Date: 20120907
  Receipt Date: 20120907
  Transmission Date: 20130627
  Serious: No
  Sender: FDA-Public Use
  Company Number: US-TEVA-357455USA

PATIENT
  Age: 64 None
  Sex: Female
  Weight: 63.56 kg

DRUGS (1)
  1. NUVIGIL [Suspect]
     Indication: SLEEP APNOEA SYNDROME
     Dosage: PRN
     Route: 048

REACTIONS (3)
  - Nail picking [Recovered/Resolved]
  - Head titubation [Recovered/Resolved]
  - Intentional overdose [Recovered/Resolved]
